APPROVED DRUG PRODUCT: CAM-METRAZINE
Active Ingredient: PHENDIMETRAZINE TARTRATE
Strength: 35MG
Dosage Form/Route: TABLET;ORAL
Application: A085321 | Product #001
Applicant: CHARTWELL RX SCIENCES LLC
Approved: Approved Prior to Jan 1, 1982 | RLD: No | RS: No | Type: DISCN